FAERS Safety Report 9871475 (Version 1)
Quarter: 2014Q1

REPORT INFORMATION
  Report Type: Spontaneous
  Country: CA (occurrence: CA)
  Receive Date: 20140205
  Receipt Date: 20140205
  Transmission Date: 20141002
  Serious: Yes (Hospitalization)
  Sender: FDA-Public Use
  Company Number: CA-CELGENEUS-028-21880-14014671

PATIENT
  Age: 81 Year
  Sex: Male

DRUGS (7)
  1. REVLIMID [Suspect]
     Indication: PLASMA CELL MYELOMA
     Dosage: 5 MILLIGRAM
     Route: 048
     Dates: start: 20120811, end: 20131211
  2. DEXAMETHASONE [Concomitant]
     Indication: PLASMA CELL MYELOMA
     Route: 065
  3. ASA [Concomitant]
     Indication: THROMBOSIS PROPHYLAXIS
     Route: 065
  4. CRESTOR [Concomitant]
     Indication: BLOOD CHOLESTEROL
     Route: 065
  5. DIOVAN [Concomitant]
     Indication: BLOOD PRESSURE
     Route: 065
  6. CLONAZEPAM [Concomitant]
     Indication: PRODUCT USED FOR UNKNOWN INDICATION
     Route: 065
  7. REMERON [Concomitant]
     Indication: PRODUCT USED FOR UNKNOWN INDICATION
     Route: 065

REACTIONS (6)
  - Pneumonia [Not Recovered/Not Resolved]
  - Renal disorder [Not Recovered/Not Resolved]
  - Lung disorder [Not Recovered/Not Resolved]
  - Cardiac disorder [Not Recovered/Not Resolved]
  - Aphagia [Not Recovered/Not Resolved]
  - Asthenia [Not Recovered/Not Resolved]
